FAERS Safety Report 24728336 (Version 1)
Quarter: 2024Q4

REPORT INFORMATION
  Report Type: Spontaneous
  Country: US (occurrence: US)
  Receive Date: 20241212
  Receipt Date: 20241212
  Transmission Date: 20250115
  Serious: No
  Sender: JOHNSON AND JOHNSON
  Company Number: US-JNJFOC-20241131612

PATIENT
  Sex: Male

DRUGS (2)
  1. YONDELIS [Suspect]
     Active Substance: TRABECTEDIN
     Indication: Product used for unknown indication
     Dates: start: 20240913
  2. YONDELIS [Suspect]
     Active Substance: TRABECTEDIN
     Dates: start: 20240914

REACTIONS (2)
  - Inadvertent injection air bubble [Recovered/Resolved]
  - Incorrect dose administered by device [Unknown]
